FAERS Safety Report 7583076-2 (Version None)
Quarter: 2011Q2

REPORT INFORMATION
  Report Type: 
  Country: None (occurrence: None)
  Receive Date: 20110627
  Receipt Date: 20110627
  Transmission Date: 20111010
  Serious: Yes (Hospitalization)
  Sender: FDA-Public Use
  Company Number: None

PATIENT
  Sex: Male

DRUGS (1)
  1. NIASPAN [Suspect]
     Dosage: 500 MG QD PO
     Route: 048
     Dates: start: 20110622, end: 20110622

REACTIONS (10)
  - CONTUSION [None]
  - RASH GENERALISED [None]
  - DYSPNOEA [None]
  - ERYTHEMA [None]
  - HYPERHIDROSIS [None]
  - HEART RATE INCREASED [None]
  - VISION BLURRED [None]
  - SUPERFICIAL VEIN PROMINENCE [None]
  - YELLOW SKIN [None]
  - FLUSHING [None]
